FAERS Safety Report 8958291 (Version 2)
Quarter: 2012Q4

REPORT INFORMATION
  Report Type: 
  Country: BR (occurrence: BR)
  Receive Date: 20121211
  Receipt Date: 20121213
  Transmission Date: 20130627
  Serious: Yes (Other)
  Sender: FDA-Public Use
  Company Number: PHHY2012BR112405

PATIENT
  Sex: Male
  Weight: 68 kg

DRUGS (7)
  1. ANAFRANIL [Suspect]
     Indication: AGORAPHOBIA
     Dosage: 25 mg, daily
     Route: 048
  2. ANAFRANIL [Suspect]
     Dosage: 10 mg, UNK
     Route: 048
  3. PAROXETINE HCL TABLETS [Suspect]
     Indication: ASTHENIA
     Dosage: 1 DF, daily
     Route: 048
  4. FRONTAL [Concomitant]
  5. TRANXILENE [Concomitant]
     Dosage: 1 DF, daily
     Route: 048
  6. ALCETAN [Concomitant]
     Dosage: 1 DF, daily
     Route: 048
  7. ALPRAZOLAM [Concomitant]
     Dosage: 1 DF, daily
     Route: 048

REACTIONS (12)
  - Fibromyalgia [Unknown]
  - Panic attack [Recovered/Resolved]
  - Agoraphobia [Recovered/Resolved]
  - Dyspnoea [Unknown]
  - Musculoskeletal disorder [Not Recovered/Not Resolved]
  - Asthenia [Recovered/Resolved]
  - Pain [Recovered/Resolved]
  - Myalgia [Recovered/Resolved]
  - Somnolence [Recovered/Resolved]
  - Hypersensitivity [Not Recovered/Not Resolved]
  - Constipation [Recovered/Resolved]
  - Erythema [Not Recovered/Not Resolved]
